FAERS Safety Report 16550522 (Version 1)
Quarter: 2019Q3

REPORT INFORMATION
  Report Type: Spontaneous
  Country: US (occurrence: US)
  Receive Date: 20190709
  Receipt Date: 20190709
  Transmission Date: 20191004
  Serious: Yes (Life-Threatening, Hospitalization, Disabling, Other)
  Sender: FDA-Public Use
  Company Number: None

PATIENT
  Age: 33 Year
  Sex: Female
  Weight: 58.5 kg

DRUGS (3)
  1. ADULT MULTI-VITAMIN [Concomitant]
  2. EQUATE RESTORE PM NIGHTTIME LUBRICANT EYE [Suspect]
     Active Substance: MINERAL OIL\PETROLATUM
     Indication: DRY EYE
     Dosage: ?          OTHER ROUTE:SMALL AMOUNT PLACED IN THE LOWER EYELID.?
     Dates: start: 20180726, end: 20190507
  3. PREDNISOLONE ACETATE EYE DROPS [Concomitant]
     Active Substance: PREDNISOLONE

REACTIONS (5)
  - Corneal transplant [None]
  - Eye infection [None]
  - Eye discharge [None]
  - Recalled product administered [None]
  - Ulcerative keratitis [None]

NARRATIVE: CASE EVENT DATE: 20190507
